FAERS Safety Report 8897938 (Version 2)
Quarter: 2013Q1

REPORT INFORMATION
  Report Type: Spontaneous
  Country: US (occurrence: US)
  Receive Date: 20121109
  Receipt Date: 20130115
  Transmission Date: 20140127
  Serious: Yes (Life-Threatening, Hospitalization)
  Sender: FDA-Public Use
  Company Number: US-B.I. PHARMACEUTICALS,INC./RIDGEFIELD-2012-BP-27236BP

PATIENT
  Sex: Female
  Weight: 122 kg

DRUGS (9)
  1. PRADAXA [Suspect]
     Indication: ATRIAL FIBRILLATION
     Dosage: 300 MG
     Route: 048
     Dates: start: 20121012, end: 201211
  2. ADVAIR [Concomitant]
     Indication: CHRONIC OBSTRUCTIVE PULMONARY DISEASE
  3. COREG [Concomitant]
     Indication: CORONARY ARTERY DISEASE
  4. LASIX [Concomitant]
     Indication: CARDIAC FAILURE CONGESTIVE
     Dosage: 20 MG
  5. LASIX [Concomitant]
     Indication: OEDEMA
  6. SYNTHROID [Concomitant]
     Indication: HYPOTHYROIDISM
     Dosage: 150 MCG
  7. KCL [Concomitant]
     Indication: BLOOD POTASSIUM DECREASED
     Dosage: 20 MCG
  8. ATORVASTATIN [Concomitant]
     Indication: CORONARY ARTERY DISEASE
     Dosage: 40 MG
  9. LISINOPRIL [Concomitant]
     Dosage: 2.5 MG

REACTIONS (1)
  - Lower gastrointestinal haemorrhage [Recovered/Resolved]
